FAERS Safety Report 17682239 (Version 2)
Quarter: 2020Q3

REPORT INFORMATION
  Report Type: Spontaneous
  Country: US (occurrence: US)
  Receive Date: 20200418
  Receipt Date: 20200918
  Transmission Date: 20201102
  Serious: Yes (Life-Threatening, Hospitalization, Other)
  Sender: FDA-Public Use
  Company Number: US-AUROBINDO-AUR-APL-2020-018188

PATIENT
  Age: 60 Year
  Sex: Male

DRUGS (4)
  1. AMIODARONE HYDROCHLORIDE. [Suspect]
     Active Substance: AMIODARONE HYDROCHLORIDE
     Dosage: 400 MILLIGRAM, TWO TIMES A DAY (LOADING DOSE)
     Route: 065
  2. AMIODARONE HYDROCHLORIDE. [Suspect]
     Active Substance: AMIODARONE HYDROCHLORIDE
     Dosage: 400 MILLIGRAM, 3 TIMES A DAY (UP?TITRATED)
     Route: 065
  3. AMIODARONE HYDROCHLORIDE. [Suspect]
     Active Substance: AMIODARONE HYDROCHLORIDE
     Indication: VENTRICULAR TACHYCARDIA
     Dosage: UNK
     Route: 065
  4. LIDOCAINE. [Concomitant]
     Active Substance: LIDOCAINE
     Indication: VENTRICULAR TACHYCARDIA
     Dosage: 100 MILLIGRAM (BY A DRIP AT 2 MG/MIN AND DECREASED TO 1 MG/MIN)
     Route: 040

REACTIONS (2)
  - Myoclonus [Recovered/Resolved]
  - Neurotoxicity [Recovered/Resolved]
